FAERS Safety Report 18629218 (Version 1)
Quarter: 2020Q4

REPORT INFORMATION
  Report Type: Spontaneous
  Country: IN (occurrence: IN)
  Receive Date: 20201217
  Receipt Date: 20201217
  Transmission Date: 20210114
  Serious: Yes (Death, Hospitalization, Other)
  Sender: FDA-Public Use
  Company Number: IN-SA-2020SA360064

PATIENT

DRUGS (3)
  1. PROPRANOLOL [Concomitant]
     Active Substance: PROPRANOLOL HYDROCHLORIDE
  2. INSULIN LISPRO [Suspect]
     Active Substance: INSULIN LISPRO
     Indication: SUICIDE ATTEMPT
     Route: 042
  3. ZOLPIDEM [Concomitant]
     Active Substance: ZOLPIDEM TARTRATE

REACTIONS (19)
  - Kidney congestion [Unknown]
  - Brain oedema [Unknown]
  - Blood pressure decreased [Unknown]
  - Pneumothorax [Unknown]
  - Unresponsive to stimuli [Unknown]
  - Pulmonary congestion [Unknown]
  - Cerebral congestion [Unknown]
  - Respiratory rate decreased [Unknown]
  - Intentional overdose [Fatal]
  - Heart rate decreased [Unknown]
  - Hepatic steatosis [Unknown]
  - Injection site haemorrhage [Unknown]
  - Foaming at mouth [Unknown]
  - Hypoglycaemia [Unknown]
  - Blood glucose decreased [Unknown]
  - Pulmonary oedema [Fatal]
  - Agonal rhythm [Unknown]
  - Pulmonary alveolar haemorrhage [Unknown]
  - Cerebral haemorrhage [Unknown]
